FAERS Safety Report 5483840-X (Version None)
Quarter: 2007Q4

REPORT INFORMATION
  Report Type: 
  Country: None (occurrence: None)
  Receive Date: 20071012
  Receipt Date: 20071003
  Transmission Date: 20080405
  Serious: Yes (Hospitalization)
  Sender: FDA-Public Use
  Company Number: US-JNJFOC-20070700006

PATIENT
  Sex: Male
  Weight: 56.7 kg

DRUGS (8)
  1. DURAGESIC-100 [Suspect]
     Route: 062
  2. DURAGESIC-100 [Suspect]
     Route: 062
  3. DURAGESIC-100 [Suspect]
     Indication: NEOPLASM MALIGNANT
     Route: 062
  4. AMLODIPINE [Concomitant]
     Indication: BLOOD PRESSURE
     Route: 048
  5. LORAZEPAM [Concomitant]
     Indication: PANIC ATTACK
     Route: 048
  6. MEGESTROL ACETATE [Concomitant]
     Indication: DECREASED APPETITE
     Route: 048
  7. LORTAB [Concomitant]
     Indication: PAIN
     Dosage: 10/325 1 TO 2 TABLETS EVERY 6 HOURS AS NEEDED
     Route: 048
  8. HYDROCODONE BITARTRATE AND ACETAMINOPHEN [Concomitant]
     Indication: PAIN
     Dosage: 10/325 1-2 TABLETS EVERY 4 - 6 HOURS AS NEEDED
     Route: 048

REACTIONS (6)
  - DRUG WITHDRAWAL SYNDROME [None]
  - DYSPHAGIA [None]
  - INCORRECT DRUG ADMINISTRATION DURATION [None]
  - ORAL CANDIDIASIS [None]
  - PHARMACEUTICAL PRODUCT COMPLAINT [None]
  - WRONG TECHNIQUE IN DRUG USAGE PROCESS [None]
